FAERS Safety Report 24556073 (Version 1)
Quarter: 2024Q4

REPORT INFORMATION
  Report Type: Report from Study
  Country: US (occurrence: US)
  Receive Date: 20241028
  Receipt Date: 20241028
  Transmission Date: 20250115
  Serious: Yes (Other)
  Sender: ABBVIE
  Company Number: US-ABBVIE-5976505

PATIENT
  Sex: Male
  Weight: 95.254 kg

DRUGS (2)
  1. SKYRIZI [Suspect]
     Active Substance: RISANKIZUMAB-RZAA
     Indication: Psoriasis
     Dosage: FORM STRENGTH: 150 MG
     Route: 058
     Dates: start: 20240930
  2. SKYRIZI [Suspect]
     Active Substance: RISANKIZUMAB-RZAA
     Dosage: FORM STRENGTH: 150 MG/LAST ADMIN DATE: SEP 2024
     Route: 058
     Dates: start: 20240909

REACTIONS (5)
  - Anal abscess [Recovering/Resolving]
  - Device issue [Not Recovered/Not Resolved]
  - Device leakage [Recovered/Resolved]
  - Injection site bruising [Recovering/Resolving]
  - Injection site erythema [Recovering/Resolving]

NARRATIVE: CASE EVENT DATE: 20240101
